FAERS Safety Report 15230454 (Version 2)
Quarter: 2018Q3

REPORT INFORMATION
  Report Type: Spontaneous
  Country: CA (occurrence: CA)
  Receive Date: 20180802
  Receipt Date: 20180824
  Transmission Date: 20181010
  Serious: Yes (Other)
  Sender: FDA-Public Use
  Company Number: CA-ORION CORPORATION ORION PHARMA-TREX2018-2275

PATIENT
  Age: 31 Year
  Sex: Male
  Weight: 80 kg

DRUGS (3)
  1. METHOTREXATE (TRADE NAME UNKNOWN) [Suspect]
     Active Substance: METHOTREXATE
     Indication: CROHN^S DISEASE
     Dosage: STRENGTH: 2.5 MG; 10 DF (TABLETS) WEEKLY EVERY FRIDAY
     Route: 048
     Dates: start: 201806
  2. OMEPRAZOLE. [Concomitant]
     Active Substance: OMEPRAZOLE
     Route: 065
  3. APO FOLIC [Concomitant]
     Active Substance: FOLIC ACID
     Route: 065

REACTIONS (5)
  - Rectal haemorrhage [Unknown]
  - White blood cell count increased [Unknown]
  - Crohn^s disease [Unknown]
  - Neutrophilia [Unknown]
  - Drug effect incomplete [Unknown]
